FAERS Safety Report 19969897 (Version 2)
Quarter: 2021Q4

REPORT INFORMATION
  Report Type: Spontaneous
  Country: US (occurrence: US)
  Receive Date: 20211019
  Receipt Date: 20211118
  Transmission Date: 20220303
  Serious: No
  Sender: FDA-Public Use
  Company Number: US-BAUSCH-BL-2021-034094

PATIENT
  Age: 84 Year
  Sex: Female

DRUGS (1)
  1. LATANOPROST [Suspect]
     Active Substance: LATANOPROST
     Indication: Glaucoma
     Dosage: ONE DROP IN EACH EYE ONCE NIGHTLY
     Route: 047

REACTIONS (4)
  - Product package associated injury [Unknown]
  - Therapy interrupted [Unknown]
  - Product closure removal difficult [Unknown]
  - Product quality issue [Unknown]
